FAERS Safety Report 9386956 (Version 1)
Quarter: 2013Q3

REPORT INFORMATION
  Report Type: Report from Study
  Country: CA (occurrence: CA)
  Receive Date: 20130708
  Receipt Date: 20130708
  Transmission Date: 20140515
  Serious: Yes (Death)
  Sender: FDA-Public Use
  Company Number: CA-JNJFOC-20130620348

PATIENT
  Age: 64 Year
  Sex: Female
  Weight: 62 kg

DRUGS (3)
  1. REMICADE [Suspect]
     Indication: CROHN^S DISEASE
     Route: 042
     Dates: start: 201110
  2. REMICADE [Suspect]
     Indication: CROHN^S DISEASE
     Dosage: START DATE: IN MAY (YEAR UNSPCIFIED)
     Route: 042
     Dates: end: 20130515
  3. REMICADE [Suspect]
     Indication: CROHN^S DISEASE
     Route: 042
     Dates: start: 2010

REACTIONS (4)
  - Angina unstable [Fatal]
  - Myocardial infarction [Fatal]
  - Mitral valve incompetence [Fatal]
  - Myocardial ischaemia [Fatal]
